FAERS Safety Report 5816516-7 (Version None)
Quarter: 2008Q3

REPORT INFORMATION
  Report Type: 
  Country: None (occurrence: None)
  Receive Date: 20080717
  Receipt Date: 20080717
  Transmission Date: 20090109
  Serious: Yes (Hospitalization)
  Sender: FDA-Public Use
  Company Number: None

PATIENT
  Age: 83 Year
  Sex: Male
  Weight: 65.7716 kg

DRUGS (2)
  1. SEROQUEL [Suspect]
     Indication: CONFUSIONAL STATE
     Dosage: 1 TWICE A DAY
     Dates: start: 20080525, end: 20080606
  2. SEROQUEL [Suspect]
     Dates: start: 20080614, end: 20080615

REACTIONS (5)
  - ANXIETY [None]
  - BLOOD GLUCOSE INCREASED [None]
  - DYSKINESIA [None]
  - RESTLESSNESS [None]
  - THINKING ABNORMAL [None]
